FAERS Safety Report 22091650 (Version 1)
Quarter: 2023Q1

REPORT INFORMATION
  Report Type: Spontaneous
  Country: US (occurrence: US)
  Receive Date: 20230314
  Receipt Date: 20230314
  Transmission Date: 20230418
  Serious: Yes (Other)
  Sender: FDA-Public Use
  Company Number: US-BRISTOL-MYERS SQUIBB COMPANY-2023-026682

PATIENT
  Age: 82 Year
  Sex: Female
  Weight: 75.75 kg

DRUGS (2)
  1. POMALIDOMIDE [Suspect]
     Active Substance: POMALIDOMIDE
     Indication: Plasma cell myeloma
     Dosage: FREQUENCY- 21 DAYS
     Route: 048
     Dates: start: 20140321, end: 20150625
  2. DEXAMETHASONE [Suspect]
     Active Substance: DEXAMETHASONE
     Indication: Plasma cell myeloma
     Dosage: ON DAYS 1, 8, 15
     Route: 048
     Dates: start: 20140327, end: 20150625

REACTIONS (1)
  - Drug resistance [Unknown]
